FAERS Safety Report 6654462-X (Version None)
Quarter: 2010Q1

REPORT INFORMATION
  Report Type: 
  Country: None (occurrence: None)
  Receive Date: 20100326
  Receipt Date: 20100318
  Transmission Date: 20100710
  Serious: Yes (Death, Hospitalization)
  Sender: FDA-Public Use
  Company Number: GXKR2010GB03269

PATIENT
  Sex: Female

DRUGS (2)
  1. VINORELBINE [Suspect]
     Indication: ADENOCARCINOMA
     Dosage: UNK
     Route: 065
     Dates: start: 20090901, end: 20091001
  2. CISPLATIN [Suspect]
     Indication: ADENOCARCINOMA
     Dosage: UNK
     Route: 065
     Dates: start: 20090901, end: 20091001

REACTIONS (4)
  - COUGH [None]
  - DYSPNOEA [None]
  - NEUTROPENIC SEPSIS [None]
  - PNEUMONIA [None]
